FAERS Safety Report 4863402-5 (Version None)
Quarter: 2005Q4

REPORT INFORMATION
  Report Type: 
  Country: None (occurrence: None)
  Receive Date: 20051222
  Receipt Date: 20041206
  Transmission Date: 20060501
  Serious: No
  Sender: FDA-Public Use
  Company Number: US-GLAXOSMITHKLINE-A0536533A

PATIENT
  Age: 50 Year
  Sex: Female

DRUGS (5)
  1. FLONASE [Suspect]
     Dosage: 1SPR PER DAY
     Route: 045
  2. HUMIBID [Concomitant]
  3. SUDAFED 12 HOUR [Concomitant]
  4. ALBUTEROL [Concomitant]
  5. ATROVENT [Concomitant]

REACTIONS (2)
  - HEADACHE [None]
  - NASAL DRYNESS [None]
